FAERS Safety Report 20567024 (Version 4)
Quarter: 2022Q2

REPORT INFORMATION
  Report Type: Report from Study
  Country: US (occurrence: US)
  Receive Date: 20220308
  Receipt Date: 20220622
  Transmission Date: 20220720
  Serious: Yes (Other)
  Sender: FDA-Public Use
  Company Number: US-UCBSA-2022011208

PATIENT
  Age: 26 Year
  Sex: Female

DRUGS (10)
  1. CERTOLIZUMAB PEGOL [Suspect]
     Active Substance: CERTOLIZUMAB PEGOL
     Indication: Psoriatic arthropathy
     Dosage: 400 MILLIGRAM, EV 4 WEEKS
  2. CERTOLIZUMAB PEGOL [Suspect]
     Active Substance: CERTOLIZUMAB PEGOL
     Indication: Rheumatoid arthritis
     Dosage: 200 MILLIGRAM, EV 2 WEEKS(QOW)
     Dates: end: 2022
  3. ADAPALENE [Concomitant]
     Active Substance: ADAPALENE
     Indication: Product used for unknown indication
     Dosage: 0.1 % GEL, APPLY THIN LAYER EXTERNALLY TO THE AFFECTED AREA EVERY NIGHT AT BEDTIME
  4. CLOBEX [CLOBETASOL PROPIONATE] [Concomitant]
     Indication: Product used for unknown indication
     Dosage: 0.05% SHAMPOO,APPLY TOPICALLY 2 (TWO) TIMES A DAY
  5. TEMOVATE [Concomitant]
     Active Substance: CLOBETASOL PROPIONATE
     Indication: Product used for unknown indication
     Dosage: 0.05% EXTERNAL SOLUTION
  6. YASMIN [Concomitant]
     Active Substance: DROSPIRENONE\ETHINYL ESTRADIOL
     Indication: Product used for unknown indication
     Dosage: 3-0.03 MG PER TABLET
  7. OCELLA [Concomitant]
     Active Substance: DROSPIRENONE\ETHINYL ESTRADIOL
     Indication: Product used for unknown indication
     Dosage: 3-0.03 MG PER TABLET
  8. PRENATAL PLUS IRON [Concomitant]
     Active Substance: .ALPHA.-TOCOPHEROL ACETATE, DL-\.BETA.-CAROTENE\ASCORBIC ACID\CALCIUM CARBONATE\CHOLECALCIFEROL\CUPR
     Indication: Product used for unknown indication
     Dosage: 200 MG CAPSULE
  9. RIFADIN [Concomitant]
     Active Substance: RIFAMPIN
     Indication: Product used for unknown indication
     Dosage: 600 MILLIGRAM
     Route: 048
  10. TURMERIC CURCUMIN [CURCUMA LONGA] [Concomitant]
     Indication: Product used for unknown indication

REACTIONS (1)
  - Mycobacterium tuberculosis complex test positive [Recovering/Resolving]

NARRATIVE: CASE EVENT DATE: 20220127
